FAERS Safety Report 5832111-8 (Version None)
Quarter: 2008Q3

REPORT INFORMATION
  Report Type: 
  Country: None (occurrence: None)
  Receive Date: 20080731
  Receipt Date: 20080724
  Transmission Date: 20090109
  Serious: Yes (Death)
  Sender: FDA-Public Use
  Company Number: 163-21880-08071494

PATIENT
  Age: 81 Year
  Sex: Male

DRUGS (2)
  1. REVLIMID [Suspect]
     Indication: MULTIPLE MYELOMA
     Dosage: 15 MG, 1 IN 1 D, ORAL, 25 MG, 1 IN 1 D, ORAL
     Route: 048
     Dates: start: 20080221, end: 20080301
  2. REVLIMID [Suspect]
     Indication: MULTIPLE MYELOMA
     Dosage: 15 MG, 1 IN 1 D, ORAL, 25 MG, 1 IN 1 D, ORAL
     Route: 048
     Dates: start: 20080627, end: 20080601

REACTIONS (1)
  - DEATH [None]
